FAERS Safety Report 10450644 (Version 1)
Quarter: 2014Q3

REPORT INFORMATION
  Report Type: Spontaneous
  Country: US (occurrence: US)
  Receive Date: 20140912
  Receipt Date: 20140912
  Transmission Date: 20150326
  Serious: Yes (Hospitalization, Other)
  Sender: FDA-Public Use
  Company Number: US-BRISTOL-MYERS SQUIBB COMPANY-21370663

PATIENT
  Age: 55 Year
  Sex: Female
  Weight: 36.28 kg

DRUGS (3)
  1. NORVASC [Concomitant]
     Active Substance: AMLODIPINE BESYLATE
  2. COUMADIN [Suspect]
     Active Substance: WARFARIN SODIUM
     Indication: PULMONARY THROMBOSIS
     Dosage: INTERRUPTED: AUG2014
     Route: 048
     Dates: start: 20140602, end: 201408
  3. PREDNISONE. [Concomitant]
     Active Substance: PREDNISONE

REACTIONS (4)
  - Fatigue [Recovered/Resolved with Sequelae]
  - Nephrolithiasis [Recovered/Resolved with Sequelae]
  - Pain [Not Recovered/Not Resolved]
  - International normalised ratio increased [Unknown]

NARRATIVE: CASE EVENT DATE: 201407
